FAERS Safety Report 18142677 (Version 1)
Quarter: 2020Q3

REPORT INFORMATION
  Report Type: Spontaneous
  Country: US (occurrence: US)
  Receive Date: 20200812
  Receipt Date: 20200812
  Transmission Date: 20201103
  Serious: No
  Sender: FDA-Public Use
  Company Number: US-TEVA-2020-US-1812919

PATIENT
  Sex: Female

DRUGS (1)
  1. NORA BE [Suspect]
     Active Substance: NORETHINDRONE
     Route: 065
     Dates: start: 20200802

REACTIONS (1)
  - Menstruation delayed [Not Recovered/Not Resolved]

NARRATIVE: CASE EVENT DATE: 20200803
